FAERS Safety Report 5329533-0 (Version None)
Quarter: 2007Q2

REPORT INFORMATION
  Report Type: 
  Country: None (occurrence: None)
  Receive Date: 20070223
  Receipt Date: 20060517
  Transmission Date: 20071010
  Serious: Yes (Disabling)
  Sender: FDA-Public Use
  Company Number: WAES 0605USA04275

PATIENT
  Age: 56 Year
  Sex: Male
  Weight: 101.1521 kg

DRUGS (7)
  1. ZOCOR [Suspect]
     Indication: BLOOD CHOLESTEROL
     Dosage: SEE IMAGE
     Route: 048
     Dates: start: 20040501, end: 20060411
  2. ZOCOR [Suspect]
     Indication: HYPERLIPIDAEMIA
     Dosage: SEE IMAGE
     Route: 048
     Dates: start: 20040501, end: 20060411
  3. ZOCOR [Suspect]
     Indication: BLOOD CHOLESTEROL
     Dosage: SEE IMAGE
     Route: 048
     Dates: start: 20060412, end: 20060512
  4. ZOCOR [Suspect]
     Indication: HYPERLIPIDAEMIA
     Dosage: SEE IMAGE
     Route: 048
     Dates: start: 20060412, end: 20060512
  5. HYZAAR [Concomitant]
  6. LEVOXYL [Concomitant]
  7. LOPID [Concomitant]

REACTIONS (4)
  - ARTHRALGIA [None]
  - BLOOD GLUCOSE INCREASED [None]
  - BLOOD LACTATE DEHYDROGENASE INCREASED [None]
  - RHABDOMYOLYSIS [None]
